FAERS Safety Report 4815730-7 (Version None)
Quarter: 2005Q4

REPORT INFORMATION
  Report Type: 
  Country: None (occurrence: None)
  Receive Date: 20051031
  Receipt Date: 20050426
  Transmission Date: 20060501
  Serious: Yes (Hospitalization)
  Sender: FDA-Public Use
  Company Number: 2005AP02511

PATIENT
  Age: 23678 Day
  Sex: Female
  Weight: 41.5 kg

DRUGS (12)
  1. IRESSA [Suspect]
     Indication: NON-SMALL CELL LUNG CANCER
     Route: 048
     Dates: start: 20050412, end: 20050425
  2. OXYCONTIN [Suspect]
     Indication: PAIN
     Route: 048
     Dates: start: 20050403, end: 20050425
  3. LOXONIN [Suspect]
     Indication: PAIN
     Route: 048
     Dates: start: 20050318, end: 20050425
  4. NAUZELIN [Concomitant]
     Indication: PROPHYLAXIS OF NAUSEA AND VOMITING
     Route: 048
     Dates: start: 20050302, end: 20050425
  5. SELBEX [Concomitant]
     Indication: GASTRITIS
     Route: 048
     Dates: start: 20050318, end: 20050425
  6. BROCIN CODEINE [Concomitant]
     Indication: COUGH
     Route: 048
     Dates: start: 20050318, end: 20050425
  7. MAGLAX [Concomitant]
     Indication: CONSTIPATION
     Route: 048
     Dates: start: 20050325, end: 20050425
  8. PURSENNID [Concomitant]
     Indication: CONSTIPATION
     Route: 048
     Dates: start: 20050325, end: 20050425
  9. OPSO [Concomitant]
     Indication: PAIN
     Route: 048
     Dates: start: 20050403, end: 20050425
  10. LASIX [Concomitant]
     Indication: OEDEMA
     Route: 048
     Dates: start: 20050404, end: 20050425
  11. MUCOSOLVAN [Concomitant]
     Indication: SPUTUM RETENTION
     Route: 048
     Dates: start: 20050415, end: 20050425
  12. ASVERIN [Concomitant]
     Indication: COUGH
     Route: 048
     Dates: start: 20050415, end: 20050425

REACTIONS (6)
  - ABDOMINAL PAIN UPPER [None]
  - ADJUSTMENT DISORDER [None]
  - BLOOD PRESSURE DIASTOLIC DECREASED [None]
  - NAUSEA [None]
  - REFUSAL OF TREATMENT BY PATIENT [None]
  - VOMITING [None]
